FAERS Safety Report 6354729-9 (Version None)
Quarter: 2009Q3

REPORT INFORMATION
  Report Type: 
  Country: None (occurrence: None)
  Receive Date: 20090909
  Receipt Date: 20090827
  Transmission Date: 20100115
  Serious: Yes (Hospitalization)
  Sender: FDA-Public Use
  Company Number: 2009EU003347

PATIENT
  Age: 80 Year
  Sex: Female

DRUGS (11)
  1. VESICARE [Suspect]
     Indication: URINARY INCONTINENCE
     Dosage: 5 MG, BID, ORAL
     Route: 048
     Dates: end: 20090717
  2. ALENDRONIC ACID (ALENDRONIC ACID) [Concomitant]
  3. ASPIRIN [Concomitant]
  4. CITALOPRAM HYDROBROMIDE [Concomitant]
  5. DIPYRIDAMOLE [Concomitant]
  6. HUMALOG (INSULIN LISPRO PROTAMINE SUSPENSION, INSULIN LISPRO) [Concomitant]
  7. INSULIN GLARGINE (INSULIN GLARGINE) [Concomitant]
  8. LEVOTHYROXINE SODIUM [Concomitant]
  9. METFORMIN HCL [Concomitant]
  10. PERINDOPRIL ERBUMINE [Concomitant]
  11. SIMVASTATIN [Concomitant]

REACTIONS (2)
  - ELECTROCARDIOGRAM QT PROLONGED [None]
  - VENTRICULAR TACHYARRHYTHMIA [None]
